FAERS Safety Report 23761879 (Version 1)
Quarter: 2024Q2

REPORT INFORMATION
  Report Type: Spontaneous
  Country: US (occurrence: US)
  Receive Date: 20240419
  Receipt Date: 20240419
  Transmission Date: 20240716
  Serious: Yes (Life-Threatening, Other)
  Sender: FDA-Public Use
  Company Number: US-BAXTER-2024BAX016807

PATIENT
  Age: 41 Year
  Sex: Male

DRUGS (3)
  1. VANCOMYCIN [Suspect]
     Active Substance: VANCOMYCIN
     Indication: Cellulitis
     Dosage: 2 G LOADING DOSE (TOTAL OF THREE DOSES)
     Route: 042
  2. VANCOMYCIN [Suspect]
     Active Substance: VANCOMYCIN
     Dosage: 1.5 G EVERY 12 HOURS (TOTAL OF THREE DOSES)
     Route: 042
  3. HEPARIN SODIUM [Suspect]
     Active Substance: HEPARIN SODIUM
     Indication: Kounis syndrome
     Dosage: HEPARIN DRIP (11.3 UNITS/KG/HR)
     Route: 041

REACTIONS (7)
  - Kounis syndrome [Unknown]
  - Chest discomfort [Recovered/Resolved]
  - Hyperhidrosis [Unknown]
  - Nausea [Unknown]
  - Headache [Unknown]
  - Pain [Unknown]
  - Discomfort [Unknown]
